FAERS Safety Report 15429075 (Version 11)
Quarter: 2021Q1

REPORT INFORMATION
  Report Type: Spontaneous
  Country: US (occurrence: US)
  Receive Date: 20180926
  Receipt Date: 20210322
  Transmission Date: 20210419
  Serious: Yes (Disabling, Other)
  Sender: FDA-Public Use
  Company Number: US-PFIZER INC-2018384870

PATIENT
  Age: 65 Year
  Sex: Female

DRUGS (1)
  1. XELJANZ XR [Suspect]
     Active Substance: TOFACITINIB CITRATE
     Indication: PSORIASIS
     Dosage: 11 MG, 1X/DAY

REACTIONS (12)
  - Blindness unilateral [Not Recovered/Not Resolved]
  - Scar [Unknown]
  - Impaired driving ability [Unknown]
  - Psoriasis [Unknown]
  - Cough [Unknown]
  - Thermal burn [Unknown]
  - Acne [Unknown]
  - Drug effective for unapproved indication [Unknown]
  - Disturbance in attention [Unknown]
  - Off label use [Unknown]
  - Speech disorder [Unknown]
  - Illness [Unknown]

NARRATIVE: CASE EVENT DATE: 20200331
